FAERS Safety Report 23226117 (Version 1)
Quarter: 2023Q4

REPORT INFORMATION
  Report Type: Spontaneous
  Country: JP (occurrence: JP)
  Receive Date: 20231124
  Receipt Date: 20231124
  Transmission Date: 20240110
  Serious: Yes (Other)
  Sender: FDA-Public Use
  Company Number: JP-SANOFI-AVENTIS R+D-2023SA059826

PATIENT

DRUGS (1)
  1. HYDROXYCHLOROQUINE SULFATE [Suspect]
     Active Substance: HYDROXYCHLOROQUINE SULFATE
     Indication: Product used for unknown indication
     Dosage: UNK (FILM-COATED TABLET)
     Route: 048

REACTIONS (6)
  - Retinal vein occlusion [Unknown]
  - Retinal detachment [Unknown]
  - Acquired pigmented retinopathy [Unknown]
  - Drug eruption [Unknown]
  - Diarrhoea [Unknown]
  - Headache [Unknown]
